FAERS Safety Report 15613614 (Version 1)
Quarter: 2018Q4

REPORT INFORMATION
  Report Type: Spontaneous
  Country: CN (occurrence: CN)
  Receive Date: 20181113
  Receipt Date: 20181113
  Transmission Date: 20190205
  Serious: Yes (Other)
  Sender: FDA-Public Use
  Company Number: CN-PFIZER INC-2018450703

PATIENT
  Age: 13 Month
  Sex: Male

DRUGS (1)
  1. ZITHROMAX [Suspect]
     Active Substance: AZITHROMYCIN DIHYDRATE
     Indication: PNEUMONIA
     Dosage: 1.2 DF, 1X/DAY
     Route: 048
     Dates: start: 20180523, end: 20180523

REACTIONS (4)
  - Rash [Recovering/Resolving]
  - Cough [Recovering/Resolving]
  - Macule [Recovering/Resolving]
  - Rash [Recovering/Resolving]

NARRATIVE: CASE EVENT DATE: 20180523
